FAERS Safety Report 15280147 (Version 1)
Quarter: 2018Q4

REPORT INFORMATION
  Report Type: Report from Study
  Country: ES (occurrence: ES)
  Receive Date: 20180815
  Receipt Date: 20180815
  Transmission Date: 20190204
  Serious: Yes (Hospitalization)
  Sender: FDA-Public Use
  Company Number: ES-TEVA-2018-ES-941750

PATIENT
  Age: 66 Year
  Sex: Female

DRUGS (5)
  1. ORFIDAL 1 MG COMPRIMIDOS, 25 COMPRIMIDOS [Interacting]
     Active Substance: LORAZEPAM
     Indication: INSOMNIA
     Dosage: 2 MILLIGRAM DAILY;
     Route: 048
     Dates: start: 20110921, end: 20171210
  2. TRAMADOL + PARACETAMOL [Interacting]
     Active Substance: ACETAMINOPHEN\TRAMADOL
     Indication: MONONEUROPATHY
     Dosage: 1 DOSAGE FORMS DAILY;
     Route: 048
     Dates: start: 20171115, end: 20171210
  3. FENTANILO (1543A) [Interacting]
     Active Substance: FENTANYL
     Indication: MONONEUROPATHY
     Dosage: 16 MICROGRAM DAILY;
     Route: 062
     Dates: start: 20171115, end: 20171210
  4. CITALOPRAM [Suspect]
     Active Substance: CITALOPRAM HYDROBROMIDE
     Indication: DEPRESSION
     Dosage: 20 MILLIGRAM DAILY;
     Route: 048
     Dates: start: 20150319, end: 20171210
  5. TRANKIMAZIN 0,50 MG COMPRIMIDOS , 30 COMPRIMIDOS [Interacting]
     Active Substance: ALPRAZOLAM
     Indication: INSOMNIA
     Dosage: .5 MILLIGRAM DAILY;
     Route: 048
     Dates: start: 20110921, end: 20171210

REACTIONS (2)
  - Depressed level of consciousness [Recovered/Resolved]
  - Drug interaction [Unknown]

NARRATIVE: CASE EVENT DATE: 20171207
